FAERS Safety Report 5731943-4 (Version None)
Quarter: 2008Q2

REPORT INFORMATION
  Report Type: 
  Country: None (occurrence: None)
  Receive Date: 20080508
  Receipt Date: 20080429
  Transmission Date: 20081010
  Serious: Yes (Life-Threatening, Disabling)
  Sender: FDA-Public Use
  Company Number: FI-ASTRAZENECA-2008SE01422

PATIENT
  Age: 50 Year
  Sex: Male

DRUGS (4)
  1. LIDOCAIN (20/MG/ML) [Suspect]
     Indication: INTERVERTEBRAL DISC PROTRUSION
     Route: 030
     Dates: start: 20050915, end: 20050915
  2. LIDOCAIN (20/MG/ML) [Suspect]
     Route: 030
     Dates: start: 20050915, end: 20050915
  3. LIDOCAIN (20/MG/ML) [Suspect]
     Route: 030
     Dates: start: 20050915, end: 20050915
  4. LIDOCAIN (20/MG/ML) [Suspect]
     Route: 030
     Dates: start: 20050915, end: 20050915

REACTIONS (12)
  - AMNESIA [None]
  - ARRHYTHMIA [None]
  - CARDIAC FAILURE [None]
  - DEAFNESS [None]
  - DIZZINESS [None]
  - DYSKINESIA [None]
  - HYPOAESTHESIA [None]
  - LOSS OF CONSCIOUSNESS [None]
  - MUSCLE TWITCHING [None]
  - OVERDOSE [None]
  - TACHYCARDIA [None]
  - VISUAL DISTURBANCE [None]
